FAERS Safety Report 4788659-0 (Version None)
Quarter: 2005Q4

REPORT INFORMATION
  Report Type: 
  Country: None (occurrence: None)
  Receive Date: 20051005
  Receipt Date: 20050926
  Transmission Date: 20060501
  Serious: Yes (Hospitalization)
  Sender: FDA-Public Use
  Company Number: FR-GLAXOSMITHKLINE-B0396043A

PATIENT
  Sex: Female

DRUGS (6)
  1. AUGMENTIN [Suspect]
     Indication: BRONCHOPNEUMOPATHY
     Route: 065
     Dates: start: 20050518, end: 20050526
  2. ESIDRIX [Suspect]
     Dosage: 1UNIT PER DAY
     Route: 048
     Dates: start: 20050527, end: 20050609
  3. AMLOR [Suspect]
     Dosage: 1UNIT PER DAY
     Route: 048
     Dates: start: 20050527, end: 20050610
  4. ARIMIDEX [Suspect]
     Indication: BREAST CANCER
     Dosage: 1UNIT PER DAY
     Route: 048
     Dates: start: 20050418, end: 20050610
  5. RADIOTHERAPY [Concomitant]
     Indication: BREAST CANCER
  6. LOVENOX [Concomitant]
     Route: 065

REACTIONS (7)
  - ANAEMIA [None]
  - HAPTOGLOBIN DECREASED [None]
  - HYPERSPLENISM [None]
  - LEUKOPENIA [None]
  - PANCYTOPENIA [None]
  - RETICULOCYTOSIS [None]
  - THROMBOCYTOPENIA [None]
